FAERS Safety Report 4617918-7 (Version None)
Quarter: 2005Q1

REPORT INFORMATION
  Report Type: 
  Country: None (occurrence: None)
  Receive Date: 20050324
  Receipt Date: 20050318
  Transmission Date: 20050727
  Serious: Yes (Other)
  Sender: FDA-Public Use
  Company Number: PHNU2005DE01403

PATIENT
  Age: 66 Year
  Sex: Male
  Weight: 72 kg

DRUGS (5)
  1. ACTRAPID HUMAN [Concomitant]
     Indication: DIABETES MELLITUS INSULIN-DEPENDENT
     Dosage: 32 IU, QD
     Route: 058
  2. ACTRAPHANE HM [Concomitant]
     Indication: DIABETES MELLITUS INSULIN-DEPENDENT
     Dosage: 24 IU, QD
     Route: 058
  3. MAGNEVIST [Concomitant]
     Indication: NUCLEAR MAGNETIC RESONANCE IMAGING
     Dosage: 15 ML, ONCE/SINGLE
     Route: 042
     Dates: start: 20050223, end: 20050223
  4. GLEEVEC [Suspect]
     Indication: GASTROINTESTINAL STROMAL TUMOUR
     Dosage: 100 MG, QID
     Route: 048
     Dates: start: 20030206, end: 20040701
  5. GLEEVEC [Suspect]
     Dosage: 100 MG, TID
     Route: 048
     Dates: start: 20040701

REACTIONS (10)
  - ANTI-THYROID ANTIBODY POSITIVE [None]
  - BASEDOW'S DISEASE [None]
  - DYSPNOEA EXERTIONAL [None]
  - GOITRE [None]
  - HYPERTHYROIDISM [None]
  - SCAN THYROID GLAND [None]
  - TACHYCARDIA [None]
  - THYROXINE INCREASED [None]
  - TRI-IODOTHYRONINE INCREASED [None]
  - ULTRASOUND SCAN ABNORMAL [None]
